FAERS Safety Report 19878343 (Version 2)
Quarter: 2021Q4

REPORT INFORMATION
  Report Type: Spontaneous
  Country: US (occurrence: US)
  Receive Date: 20210923
  Receipt Date: 20211004
  Transmission Date: 20220304
  Serious: Yes (Hospitalization, Other)
  Sender: FDA-Public Use
  Company Number: US-TEVA-2021-US-1955537

PATIENT
  Age: 70 Year
  Sex: Male

DRUGS (10)
  1. ETHAMBUTOL [Suspect]
     Active Substance: ETHAMBUTOL HYDROCHLORIDE
     Indication: Disseminated Bacillus Calmette-Guerin infection
     Route: 065
     Dates: start: 201909, end: 202003
  2. ISONIAZID [Suspect]
     Active Substance: ISONIAZID
     Indication: Disseminated Bacillus Calmette-Guerin infection
     Dosage: 3 WEEK COURSE
     Route: 065
     Dates: start: 201904
  3. ISONIAZID [Suspect]
     Active Substance: ISONIAZID
     Indication: Cystitis
     Route: 065
     Dates: start: 201909, end: 202003
  4. ISONIAZID [Suspect]
     Active Substance: ISONIAZID
     Indication: Disseminated Bacillus Calmette-Guerin infection
  5. BCG VACCINE [Suspect]
     Active Substance: BCG VACCINE
     Indication: Transitional cell carcinoma
     Dosage: FIRST THERAPEUTIC COURSE
     Route: 043
     Dates: start: 201807, end: 201808
  6. BCG VACCINE [Suspect]
     Active Substance: BCG VACCINE
     Dosage: SECOND THERAPEUTIC COURSE
     Route: 043
     Dates: start: 201810
  7. BCG VACCINE [Suspect]
     Active Substance: BCG VACCINE
     Dosage: MAINTENANCE COURSE
     Route: 043
     Dates: start: 201902
  8. RIFAMPIN [Suspect]
     Active Substance: RIFAMPIN
     Indication: Disseminated Bacillus Calmette-Guerin infection
     Dosage: 3 WEEK COURSE
     Route: 065
     Dates: start: 201904
  9. RIFAMPIN [Suspect]
     Active Substance: RIFAMPIN
     Indication: Cystitis
     Route: 065
     Dates: start: 201909, end: 202003
  10. RIFAMPIN [Suspect]
     Active Substance: RIFAMPIN
     Indication: Disseminated Bacillus Calmette-Guerin infection

REACTIONS (7)
  - Parapharyngeal space infection [Recovering/Resolving]
  - Neck mass [Recovering/Resolving]
  - Tuberculosis [Recovering/Resolving]
  - Disseminated Bacillus Calmette-Guerin infection [Recovered/Resolved]
  - Cystitis [Recovered/Resolved]
  - Disseminated Bacillus Calmette-Guerin infection [Unknown]
  - Paradoxical drug reaction [Recovering/Resolving]

NARRATIVE: CASE EVENT DATE: 20190401
